FAERS Safety Report 16986496 (Version 1)
Quarter: 2019Q4

REPORT INFORMATION
  Report Type: Spontaneous
  Country: US (occurrence: US)
  Receive Date: 20191007
  Receipt Date: 20191007
  Transmission Date: 20200122
  Serious: Yes (Other)
  Sender: FDA-Public Use
  Company Number: None

PATIENT

DRUGS (1)
  1. DOCETAXEL. [Suspect]
     Active Substance: DOCETAXEL
     Indication: BREAST CANCER
     Route: 041
     Dates: start: 20190813

REACTIONS (3)
  - Back pain [None]
  - Adverse drug reaction [None]
  - Infusion related reaction [None]

NARRATIVE: CASE EVENT DATE: 20190813
